FAERS Safety Report 10917136 (Version 1)
Quarter: 2015Q1

REPORT INFORMATION
  Report Type: Spontaneous
  Country: US (occurrence: US)
  Receive Date: 20150316
  Receipt Date: 20150316
  Transmission Date: 20150721
  Serious: Yes (Other)
  Sender: FDA-Public Use
  Company Number: PHHY2015US028026

PATIENT
  Age: 43 Year
  Sex: Female

DRUGS (3)
  1. RIFAMPICIN [Suspect]
     Active Substance: RIFAMPIN
     Indication: PRODUCT USED FOR UNKNOWN INDICATION
     Dosage: UNK
     Route: 065
  2. ETHAMBUTOL [Suspect]
     Active Substance: ETHAMBUTOL HYDROCHLORIDE
     Indication: PRODUCT USED FOR UNKNOWN INDICATION
     Route: 065
  3. CLARITHROMYCIN. [Suspect]
     Active Substance: CLARITHROMYCIN
     Indication: PRODUCT USED FOR UNKNOWN INDICATION
     Route: 065

REACTIONS (8)
  - Transaminases increased [Recovered/Resolved]
  - Drug reaction with eosinophilia and systemic symptoms [Unknown]
  - C-reactive protein increased [Recovered/Resolved]
  - Liver function test abnormal [Recovered/Resolved]
  - Eosinophilia [Recovered/Resolved]
  - Stevens-Johnson syndrome [Unknown]
  - Renal impairment [Recovered/Resolved]
  - Pyrexia [Recovered/Resolved]
